FAERS Safety Report 14844583 (Version 2)
Quarter: 2018Q3

REPORT INFORMATION
  Report Type: Spontaneous
  Country: GB (occurrence: GB)
  Receive Date: 20180503
  Receipt Date: 20180904
  Transmission Date: 20181010
  Serious: Yes (Disabling)
  Sender: FDA-Public Use
  Company Number: GB-009507513-1804GBR011150

PATIENT
  Age: 76 Year
  Sex: Female
  Weight: 70 kg

DRUGS (31)
  1. TEICOPLANIN [Concomitant]
     Active Substance: TEICOPLANIN
     Indication: INFECTION
     Dosage: 600 MG, QD
     Route: 042
     Dates: start: 20180209, end: 20180307
  2. NITROGLYCERIN. [Concomitant]
     Active Substance: NITROGLYCERIN
     Dosage: 400 MICROGRAM, UNK
     Dates: start: 20180124, end: 20180124
  3. AMOXICILLIN (+) CLAVULANATE POTASSIUM [Concomitant]
     Active Substance: AMOXICILLIN\CLAVULANATE POTASSIUM
     Indication: INFECTION
     Dosage: 3.6 G, QD
     Route: 042
     Dates: start: 20180224, end: 20180309
  4. CYCLIZINE HYDROCHLORIDE [Concomitant]
     Active Substance: CYCLIZINE HYDROCHLORIDE
     Dosage: THREE TIMES DAILY ; AS NECESSARY
     Dates: start: 20180121, end: 20180129
  5. ACIDEX (CALCIUM CARBONATE (+) SODIUM ALGINATE (+) SODIUM BICARBONATE) [Concomitant]
     Active Substance: CALCIUM CARBONATE\SODIUM ALGINATE\SODIUM BICARBONATE
     Dosage: THREE TIMES DAILY ; AS NECESSARY
     Dates: start: 20180124
  6. ATENOLOL (+) CHLORTHALIDONE [Concomitant]
     Active Substance: ATENOLOL\CHLORTHALIDONE
     Dosage: 50/12.5
     Dates: start: 20100825, end: 20180214
  7. ERTAPENEM SODIUM [Suspect]
     Active Substance: ERTAPENEM SODIUM
     Indication: DEVICE RELATED INFECTION
     Dosage: 1 G, UNK
     Route: 042
     Dates: start: 20180209, end: 20180307
  8. CLONIDINE. [Concomitant]
     Active Substance: CLONIDINE
     Dosage: 4 DF, QD
     Dates: start: 20160317
  9. DALTEPARIN SODIUM [Concomitant]
     Active Substance: DALTEPARIN SODIUM
     Indication: DEEP VEIN THROMBOSIS
     Dosage: 12500 IU, UNK
     Route: 058
     Dates: start: 20180316, end: 20180319
  10. ONDANSETRON HYDROCHLORIDE. [Concomitant]
     Active Substance: ONDANSETRON HYDROCHLORIDE
     Dosage: THREE TIMES DAILY. ; AS NECESSARY
     Dates: start: 20180124, end: 20180211
  11. KETAMINE [Concomitant]
     Active Substance: KETAMINE
     Indication: PAIN
     Dosage: UP TO 5 TIMES A DAY
     Dates: start: 20180225, end: 20180228
  12. DOTHIEPIN HYDROCHLORIDE [Concomitant]
     Active Substance: DOTHIEPIN HYDROCHLORIDE
     Dosage: 75 MG, QD
     Dates: start: 20120816
  13. GENTAMICIN SULFATE. [Concomitant]
     Active Substance: GENTAMICIN SULFATE
     Indication: INFECTION
     Dosage: AS PRESCRIBED
     Route: 042
     Dates: start: 20180224, end: 20180226
  14. FORMOTEROL FUMARATE [Concomitant]
     Active Substance: FORMOTEROL FUMARATE
     Dosage: 24 MICROGRAM, QD
     Dates: start: 20130221
  15. LACTULOSE. [Concomitant]
     Active Substance: LACTULOSE
     Dosage: 10 ML, QD
     Dates: start: 20100825
  16. TAZOCIN (PIPERACILLIN SODIUM (+) TAZOBACTAM SODIUM) [Concomitant]
     Active Substance: PIPERACILLIN SODIUM\TAZOBACTAM SODIUM
     Indication: INFECTION
     Dosage: ONCE ONLY
     Dates: start: 20180124, end: 20180124
  17. RANITIDINE HYDROCHLORIDE. [Concomitant]
     Active Substance: RANITIDINE HYDROCHLORIDE
     Dosage: 300 MG, QD
     Dates: start: 20170921
  18. AMOXICILLIN (+) CLAVULANATE POTASSIUM [Concomitant]
     Active Substance: AMOXICILLIN\CLAVULANATE POTASSIUM
     Dosage: 1875 MG, QD
     Dates: start: 20180308, end: 20180322
  19. ACLIDINIUM BROMIDE. [Concomitant]
     Active Substance: ACLIDINIUM BROMIDE
     Dosage: 750 MICROGRAM, QD
     Route: 055
     Dates: start: 20160602
  20. ZOPICLONE [Concomitant]
     Active Substance: ZOPICLONE
     Dosage: AT NIGHT
     Dates: start: 20140723
  21. ATENOLOL. [Concomitant]
     Active Substance: ATENOLOL
     Dosage: 50 MG, QD
     Dates: start: 20180214
  22. FLOXACILLIN [Concomitant]
     Active Substance: FLUCLOXACILLIN
     Indication: INFECTION
     Dosage: 4 G, QD
     Route: 042
     Dates: start: 20180222, end: 20180224
  23. FERROUS FUMARATE [Concomitant]
     Active Substance: FERROUS FUMARATE
     Indication: ANAEMIA
     Dosage: 610 MG, QD
     Dates: start: 20180222, end: 20180522
  24. SANDO?K [Concomitant]
     Active Substance: POTASSIUM BICARBONATE\POTASSIUM CHLORIDE
     Dosage: 6 DF, QD
     Dates: start: 20180206, end: 20180209
  25. ASPIRIN. [Concomitant]
     Active Substance: ASPIRIN
     Dosage: ONCE ONLY
     Dates: start: 20180124, end: 20180124
  26. METOCLOPRAMIDE. [Concomitant]
     Active Substance: METOCLOPRAMIDE
     Dosage: 30 MG, QD
     Dates: start: 20180124, end: 20180211
  27. DIHYDROCODEINE BITARTRATE [Concomitant]
     Active Substance: DIHYDROCODEINE BITARTRATE
     Dosage: 250 MG, QD
     Dates: start: 20110815, end: 20180703
  28. ACETAMINOPHEN. [Concomitant]
     Active Substance: ACETAMINOPHEN
     Dosage: 4 G, QD
     Dates: start: 20100825
  29. CHLORHEXIDINE HYDROCHLORIDE [Concomitant]
     Active Substance: CHLORHEXIDINE HYDROCHLORIDE
     Dosage: 2 DF, QD
     Route: 048
     Dates: start: 20180129, end: 20180210
  30. METRONIDAZOLE. [Concomitant]
     Active Substance: METRONIDAZOLE
     Indication: INFECTION
     Dosage: 1500 MG, QD; INITIALLY DISCONTINUED AS THOUGHT THIS WAS THE CAUSE.
     Route: 042
     Dates: start: 20180126, end: 20180129
  31. METRONIDAZOLE. [Concomitant]
     Active Substance: METRONIDAZOLE
     Dosage: INITIALLY DISCONTINUED AS THOUGHT THIS WAS THE CAUSE.
     Route: 048
     Dates: start: 20180208, end: 20180228

REACTIONS (4)
  - Paraesthesia [Recovered/Resolved]
  - Dizziness [Recovered/Resolved]
  - Dystonia [Recovered/Resolved]
  - Hypoaesthesia [Recovered/Resolved]

NARRATIVE: CASE EVENT DATE: 20180221
